FAERS Safety Report 6615468-X (Version None)
Quarter: 2010Q1

REPORT INFORMATION
  Report Type: 
  Country: None (occurrence: None)
  Receive Date: 20100305
  Receipt Date: 20100222
  Transmission Date: 20100710
  Serious: Yes (Other)
  Sender: FDA-Public Use
  Company Number: FR-SANOFI-AVENTIS-2010SA010239

PATIENT
  Age: 68 Year
  Sex: Male

DRUGS (2)
  1. FLUDEX [Suspect]
     Route: 048
     Dates: start: 20090201, end: 20090301
  2. INDAPAMIDE [Suspect]
     Indication: HYPERTENSION
     Route: 048
     Dates: start: 20090301, end: 20090701

REACTIONS (2)
  - ANGIOEDEMA [None]
  - OROPHARYNGEAL PAIN [None]
